FAERS Safety Report 25979746 (Version 1)
Quarter: 2025Q4

REPORT INFORMATION
  Report Type: Spontaneous
  Country: US (occurrence: US)
  Receive Date: 20251030
  Receipt Date: 20251030
  Transmission Date: 20260117
  Serious: No
  Sender: ABBVIE
  Company Number: US-ABBVIE-6516355

PATIENT
  Age: 54 Year
  Sex: Female
  Weight: 61.234 kg

DRUGS (5)
  1. BOTOX COSMETIC [Suspect]
     Active Substance: ONABOTULINUMTOXINA
     Indication: Skin wrinkling
     Dosage: TIME INTERVAL: AS NECESSARY
     Route: 030
     Dates: start: 2010, end: 2010
  2. BOTOX COSMETIC [Suspect]
     Active Substance: ONABOTULINUMTOXINA
     Indication: Skin wrinkling
     Dosage: TIME INTERVAL: AS NECESSARY: 30 UNIT?EVERY 6 MONTHS
     Route: 030
     Dates: start: 20251003, end: 20251003
  3. BOTOX COSMETIC [Suspect]
     Active Substance: ONABOTULINUMTOXINA
     Indication: Skin wrinkling
     Dosage: TIME INTERVAL: AS NECESSARY: 30 UNIT?EVERY 6 MONTHS
     Route: 030
     Dates: start: 20251003, end: 20251003
  4. ATORVASTATIN [Concomitant]
     Active Substance: ATORVASTATIN
     Indication: Blood cholesterol abnormal
  5. REPATHA [Concomitant]
     Active Substance: EVOLOCUMAB
     Indication: Blood cholesterol abnormal

REACTIONS (12)
  - Eye infection [Not Recovered/Not Resolved]
  - Muscular weakness [Not Recovered/Not Resolved]
  - Diplopia [Not Recovered/Not Resolved]
  - Eyelid ptosis [Not Recovered/Not Resolved]
  - Dysphagia [Not Recovered/Not Resolved]
  - Speech disorder [Recovering/Resolving]
  - Vision blurred [Not Recovered/Not Resolved]
  - Dry mouth [Not Recovered/Not Resolved]
  - Ophthalmoplegia [Not Recovered/Not Resolved]
  - Injection site mass [Unknown]
  - Suspected counterfeit product [Unknown]
  - Dysphonia [Unknown]

NARRATIVE: CASE EVENT DATE: 20251001
